FAERS Safety Report 7354105-6 (Version None)
Quarter: 2011Q1

REPORT INFORMATION
  Report Type: 
  Country: None (occurrence: None)
  Receive Date: 20110315
  Receipt Date: 20110302
  Transmission Date: 20110831
  Serious: Yes (Other)
  Sender: FDA-Public Use
  Company Number: JP-ABBOTT-11P-087-0711164-00

PATIENT
  Sex: Male
  Weight: 78 kg

DRUGS (10)
  1. HUMIRA [Suspect]
     Indication: RHEUMATOID ARTHRITIS
     Route: 058
     Dates: start: 20100127, end: 20100630
  2. PREDNISOLONE [Concomitant]
     Dosage: DAILY DOSE: 5MG
     Dates: start: 20100219, end: 20100304
  3. PREDNISOLONE [Concomitant]
     Dosage: DAILY DOSE: 2.5MG
     Dates: start: 20100305, end: 20100318
  4. PREDNISOLONE [Concomitant]
     Route: 048
     Dates: end: 20100204
  5. CARBAZOCHROME SODIUM SULFONATE HYDRATE [Concomitant]
     Indication: HENOCH-SCHONLEIN PURPURA
     Dosage: DAILY DOSE: 90MG
     Route: 048
     Dates: end: 20100625
  6. SALAZOSULFAPYRIDINE [Concomitant]
     Indication: RHEUMATOID ARTHRITIS
     Dosage: DAILY DOSE: 1000MG
     Route: 048
     Dates: end: 20100224
  7. PREDNISOLONE [Concomitant]
     Dates: start: 20100623
  8. PREDNISOLONE [Concomitant]
     Indication: HENOCH-SCHONLEIN PURPURA
     Dosage: DAILY DOSE: 7.5MG
     Dates: start: 20100205, end: 20100218
  9. TRANEXAMIC ACID [Concomitant]
     Indication: HENOCH-SCHONLEIN PURPURA
     Dosage: DAILY DOSE: 750MG
     Route: 048
     Dates: end: 20100625
  10. OLOPATADINE HYDROCHLORIDE [Concomitant]
     Indication: HENOCH-SCHONLEIN PURPURA
     Dosage: DAILY DOSE: 10MG
     Route: 048
     Dates: end: 20100305

REACTIONS (3)
  - HENOCH-SCHONLEIN PURPURA NEPHRITIS [None]
  - PROTEINURIA [None]
  - RENAL IMPAIRMENT [None]
